FAERS Safety Report 21203564 (Version 2)
Quarter: 2022Q3

REPORT INFORMATION
  Report Type: Spontaneous
  Country: BE (occurrence: BE)
  Receive Date: 20220811
  Receipt Date: 20220826
  Transmission Date: 20221027
  Serious: Yes (Hospitalization, Other)
  Sender: FDA-Public Use
  Company Number: BE-TEVA-2022-BE-2062512

PATIENT
  Age: 69 Year
  Sex: Male

DRUGS (4)
  1. CISPLATIN [Suspect]
     Active Substance: CISPLATIN
     Indication: Cholangiocarcinoma
     Dosage: RECEIVED 2 CYCLES
     Route: 065
  2. GEMCITABINE [Suspect]
     Active Substance: GEMCITABINE
     Indication: Cholangiocarcinoma
     Dosage: RECEIVED 2 CYCLES
     Route: 065
  3. IPILIMUMAB [Suspect]
     Active Substance: IPILIMUMAB
     Indication: Cholangiocarcinoma
     Route: 065
  4. NIVOLUMAB [Suspect]
     Active Substance: NIVOLUMAB
     Indication: Cholangiocarcinoma
     Route: 065

REACTIONS (3)
  - Drug ineffective [Unknown]
  - Myocarditis [Recovering/Resolving]
  - Cerebral artery embolism [Recovering/Resolving]
